FAERS Safety Report 4784716-3 (Version None)
Quarter: 2005Q3

REPORT INFORMATION
  Report Type: 
  Country: None (occurrence: None)
  Receive Date: 20050930
  Receipt Date: 20050406
  Transmission Date: 20060218
  Serious: Yes (Hospitalization, Disabling)
  Sender: FDA-Public Use
  Company Number: US-ROCHE-401470

PATIENT
  Age: 15 Year
  Sex: Male
  Weight: 81.6 kg

DRUGS (6)
  1. ACCUTANE [Suspect]
     Route: 048
     Dates: start: 19961028, end: 19961223
  2. ACCUTANE [Suspect]
     Route: 048
     Dates: start: 19961223, end: 19970315
  3. ACCUTANE [Suspect]
     Route: 048
     Dates: start: 19990907, end: 19990921
  4. ACCUTANE [Suspect]
     Route: 048
     Dates: start: 19990921
  5. ACCUTANE [Suspect]
     Route: 048
     Dates: start: 20000918, end: 20010315
  6. HYDROXYZINE [Concomitant]
     Indication: URTICARIA
     Route: 048
     Dates: start: 19970123, end: 19970125

REACTIONS (12)
  - CHEILITIS [None]
  - COLITIS [None]
  - COLITIS ULCERATIVE [None]
  - EPISTAXIS [None]
  - ERYTHEMA [None]
  - GASTROINTESTINAL DISORDER [None]
  - INFLAMMATORY BOWEL DISEASE [None]
  - INTESTINAL HAEMORRHAGE [None]
  - IRRITABLE BOWEL SYNDROME [None]
  - MULTI-ORGAN DISORDER [None]
  - RECTAL HAEMORRHAGE [None]
  - WEIGHT DECREASED [None]
